FAERS Safety Report 16441808 (Version 1)
Quarter: 2019Q2

REPORT INFORMATION
  Report Type: Spontaneous
  Country: US (occurrence: US)
  Receive Date: 20190617
  Receipt Date: 20190617
  Transmission Date: 20190711
  Serious: No
  Sender: FDA-Public Use
  Company Number: US-US WORLDMEDS, LLC-USW201807-001118

PATIENT
  Age: 73 Year
  Sex: Female

DRUGS (1)
  1. APOKYN [Suspect]
     Active Substance: APOMORPHINE HYDROCHLORIDE

REACTIONS (4)
  - Hypotension [Unknown]
  - Dizziness [Unknown]
  - Rhinorrhoea [Unknown]
  - Drooling [Unknown]

NARRATIVE: CASE EVENT DATE: 20180719
